FAERS Safety Report 19418546 (Version 1)
Quarter: 2021Q2

REPORT INFORMATION
  Report Type: Spontaneous
  Country: IT (occurrence: IT)
  Receive Date: 20210615
  Receipt Date: 20210615
  Transmission Date: 20210717
  Serious: Yes (Life-Threatening, Hospitalization, Other)
  Sender: FDA-Public Use
  Company Number: IT-TEVA-2021-IT-1922253

PATIENT
  Age: 37 Year
  Sex: Male

DRUGS (6)
  1. PALIPERIDONE. [Suspect]
     Active Substance: PALIPERIDONE
     Indication: SCHIZOPHRENIA
  2. PALIPERIDONE PALMITATE [Suspect]
     Active Substance: PALIPERIDONE PALMITATE
     Indication: INTELLECTUAL DISABILITY
     Dosage: THE PATIENT RECEIVED LONG?ACTING INJECTABLE PALIPERIDONE 150MG (DAY 1)
     Route: 030
  3. PALIPERIDONE PALMITATE [Suspect]
     Active Substance: PALIPERIDONE PALMITATE
     Indication: SCHIZOPHRENIA
     Dosage: THE PATIENT RECEIVED LONG?ACTING INJECTABLE PALIPERIDONE 100MG (DAY 8)
     Route: 030
  4. OLANZAPINE. [Suspect]
     Active Substance: OLANZAPINE
     Indication: INTELLECTUAL DISABILITY
     Route: 048
  5. OLANZAPINE. [Suspect]
     Active Substance: OLANZAPINE
     Indication: SCHIZOPHRENIA
  6. PALIPERIDONE. [Suspect]
     Active Substance: PALIPERIDONE
     Indication: INTELLECTUAL DISABILITY
     Route: 048

REACTIONS (6)
  - Agitation [Recovering/Resolving]
  - Confusional state [Recovering/Resolving]
  - Therapy non-responder [Unknown]
  - Extrapyramidal disorder [Recovering/Resolving]
  - Dyspnoea [Recovering/Resolving]
  - Hyperthermia [Recovered/Resolved]
